FAERS Safety Report 6265777-1 (Version None)
Quarter: 2009Q3

REPORT INFORMATION
  Report Type: 
  Country: None (occurrence: None)
  Receive Date: 20090713
  Receipt Date: 20090703
  Transmission Date: 20100115
  Serious: Yes (Other)
  Sender: FDA-Public Use
  Company Number: B0581899A

PATIENT
  Age: 42 Year
  Sex: Female
  Weight: 80 kg

DRUGS (1)
  1. ORLISTAT [Suspect]
     Dosage: 180MG PER DAY
     Route: 048
     Dates: start: 20090513, end: 20090519

REACTIONS (1)
  - GRAND MAL CONVULSION [None]
